FAERS Safety Report 22791742 (Version 2)
Quarter: 2023Q4

REPORT INFORMATION
  Report Type: Report from Study
  Country: US (occurrence: US)
  Receive Date: 20230807
  Receipt Date: 20231124
  Transmission Date: 20240110
  Serious: Yes (Hospitalization)
  Sender: FDA-Public Use
  Company Number: US-JNJFOC-20230802286

PATIENT
  Age: 25 Year
  Sex: Female
  Weight: 75.818 kg

DRUGS (6)
  1. SPRAVATO [Suspect]
     Active Substance: ESKETAMINE
     Indication: Depression
     Dosage: 84 MG, TOTAL 17 DOSES
     Dates: start: 20230420, end: 20230714
  2. SPRAVATO [Suspect]
     Active Substance: ESKETAMINE
     Indication: Major depression
     Dosage: 84 MG, TOTAL 1 DOSE
     Dates: start: 20230727, end: 20230727
  3. SPRAVATO [Suspect]
     Active Substance: ESKETAMINE
     Indication: Suicidal ideation
  4. NURTEC ODT [Concomitant]
     Active Substance: RIMEGEPANT SULFATE
     Indication: Migraine
     Route: 048
     Dates: start: 202305
  5. ZONISAMIDE [Concomitant]
     Active Substance: ZONISAMIDE
     Indication: Migraine
     Route: 048
     Dates: start: 202305
  6. QUETIAPINE [Concomitant]
     Active Substance: QUETIAPINE
     Indication: Major depression
     Route: 048
     Dates: start: 202303, end: 202305

REACTIONS (2)
  - Suicidal ideation [Recovered/Resolved]
  - Major depression [Recovering/Resolving]

NARRATIVE: CASE EVENT DATE: 20230511
